FAERS Safety Report 23679328 (Version 2)
Quarter: 2024Q2

REPORT INFORMATION
  Report Type: Spontaneous
  Country: FR (occurrence: FR)
  Receive Date: 20240327
  Receipt Date: 20240405
  Transmission Date: 20240715
  Serious: Yes (Other)
  Sender: FDA-Public Use
  Company Number: FR-TEVA-VS-3174290

PATIENT
  Age: 84 Year
  Sex: Female

DRUGS (3)
  1. NEBIVOLOL HYDROCHLORIDE [Suspect]
     Active Substance: NEBIVOLOL HYDROCHLORIDE
     Indication: Hypertension
     Dosage: NEBIVOLOL TEVA 5 MG, QUADRISECTIBLE TABLET (1/2 MORNING AND 1/2 EVENING)
     Route: 065
  2. PERINDOPRIL ERBUMINE [Suspect]
     Active Substance: PERINDOPRIL ERBUMINE
     Indication: Hypertension
     Dosage: PERINDOPRIL TEVA SANTE 2 MG, TABLET (1 TABLET PER DAY) FOR YEARS (EXACT DATE NOT KNOWN)
     Route: 065
  3. AMLODIPINE [Suspect]
     Active Substance: AMLODIPINE BESYLATE
     Indication: Hypertension
     Dosage: AMLODIPINE TEVA 5 MG, 1 CAPSULE A DAY EVERY MORNING
     Route: 065

REACTIONS (2)
  - Hypertensive crisis [Recovered/Resolved]
  - Drug ineffective [Unknown]
